FAERS Safety Report 20774860 (Version 1)
Quarter: 2022Q2

REPORT INFORMATION
  Report Type: Spontaneous
  Country: US (occurrence: US)
  Receive Date: 20220502
  Receipt Date: 20220502
  Transmission Date: 20220720
  Serious: No
  Sender: FDA-Public Use
  Company Number: US-PFIZER INC-202101015286

PATIENT
  Age: 74 Year
  Sex: Female

DRUGS (4)
  1. METHYLPREDNISOLONE [Suspect]
     Active Substance: METHYLPREDNISOLONE
     Dosage: UNK
  2. PERMETHRIN [Suspect]
     Active Substance: PERMETHRIN
     Dosage: UNK
  3. MUPIROCIN [Suspect]
     Active Substance: MUPIROCIN
     Dosage: UNK
  4. HALOBETASOL PROPIONATE [Suspect]
     Active Substance: HALOBETASOL PROPIONATE
     Dosage: UNK

REACTIONS (1)
  - Drug ineffective [Unknown]
